FAERS Safety Report 10712929 (Version 1)
Quarter: 2015Q1

REPORT INFORMATION
  Report Type: Spontaneous
  Country: US (occurrence: None)
  Receive Date: 20150114
  Receipt Date: 20150114
  Transmission Date: 20150721
  Serious: No
  Sender: FDA-Public Use
  Company Number: None

PATIENT
  Age: 57 Year
  Sex: Female
  Weight: 144.7 kg

DRUGS (2)
  1. CELEBREX [Suspect]
     Active Substance: CELECOXIB
     Indication: PAIN
     Dosage: ONCE A DAY 1 CAPSULE
     Dates: start: 20141231, end: 20150112
  2. CELEBREX [Suspect]
     Active Substance: CELECOXIB
     Indication: JOINT SWELLING
     Dosage: ONCE A DAY 1 CAPSULE
     Dates: start: 20141231, end: 20150112

REACTIONS (2)
  - Anaemia [None]
  - Chest pain [None]
